FAERS Safety Report 6522872-7 (Version None)
Quarter: 2009Q4

REPORT INFORMATION
  Report Type: 
  Country: None (occurrence: None)
  Receive Date: 20091230
  Receipt Date: 20091221
  Transmission Date: 20100525
  Serious: Yes (Other)
  Sender: FDA-Public Use
  Company Number: US-AMGEN-QUU381758

PATIENT
  Sex: Female

DRUGS (13)
  1. NEULASTA [Suspect]
     Indication: DRUG USE FOR UNKNOWN INDICATION
     Dates: start: 20091213
  2. INSULIN [Concomitant]
  3. HYDROCORTISONE [Concomitant]
     Dates: start: 20091210
  4. QUETIAPINE [Concomitant]
  5. ESOMEPRAZOLE SODIUM (NEXIUM) [Concomitant]
     Dates: start: 20091210
  6. URSODIOL [Concomitant]
  7. FOLIC ACID [Concomitant]
  8. ATORVASTATIN CALCIUM [Concomitant]
     Dates: start: 20091210
  9. VITAMIN D [Concomitant]
  10. LISINOPRIL [Concomitant]
  11. FENOFIBRATE [Concomitant]
  12. LEVOFLOXACIN [Concomitant]
     Dates: start: 20091210
  13. FLAGYL [Concomitant]
     Dates: start: 20091210

REACTIONS (3)
  - DRUG ADMINISTRATION ERROR [None]
  - MUSCULAR WEAKNESS [None]
  - WHITE BLOOD CELL COUNT INCREASED [None]
